FAERS Safety Report 20706063 (Version 7)
Quarter: 2024Q4

REPORT INFORMATION
  Report Type: Report from Study
  Country: CA (occurrence: CA)
  Receive Date: 20220413
  Receipt Date: 20241107
  Transmission Date: 20250114
  Serious: No
  Sender: ROCHE
  Company Number: CA-ROCHE-3027768

PATIENT
  Age: 54 Year
  Sex: Male

DRUGS (6)
  1. OCREVUS [Suspect]
     Active Substance: OCRELIZUMAB
     Indication: Relapsing-remitting multiple sclerosis
     Dosage: THEN 600 MG EVERY 6 MONTH
     Route: 042
     Dates: start: 20210219
  2. CLOZAPINE [Concomitant]
     Active Substance: CLOZAPINE
  3. ATENOLOL [Concomitant]
     Active Substance: ATENOLOL
  4. DOCUSATE SODIUM [Concomitant]
     Active Substance: DOCUSATE SODIUM
  5. IPRATROPIUM [Concomitant]
     Active Substance: IPRATROPIUM
  6. LACTULOSE [Concomitant]
     Active Substance: LACTULOSE

REACTIONS (8)
  - Gait disturbance [Not Recovered/Not Resolved]
  - COVID-19 [Recovered/Resolved]
  - Mobility decreased [Recovered/Resolved]
  - Malaise [Unknown]
  - Fall [Unknown]
  - Off label use [Unknown]
  - Pain in extremity [Not Recovered/Not Resolved]
  - Limb discomfort [Not Recovered/Not Resolved]

NARRATIVE: CASE EVENT DATE: 20220214
